FAERS Safety Report 17867551 (Version 1)
Quarter: 2020Q2

REPORT INFORMATION
  Report Type: Spontaneous
  Country: US (occurrence: US)
  Receive Date: 20200605
  Receipt Date: 20200605
  Transmission Date: 20200714
  Serious: Yes (Hospitalization)
  Sender: FDA-Public Use
  Company Number: US-BAYER-2020-100397

PATIENT
  Age: 86 Year
  Sex: Female
  Weight: 63.5 kg

DRUGS (14)
  1. CIPRO [Suspect]
     Active Substance: CIPROFLOXACIN HYDROCHLORIDE
     Indication: URINARY TRACT INFECTION
     Dosage: UNK
     Dates: start: 20200417, end: 202004
  2. FLUOXETINE [Concomitant]
     Active Substance: FLUOXETINE HYDROCHLORIDE
     Dosage: UNK
  3. OMEPRAZOLE. [Concomitant]
     Active Substance: OMEPRAZOLE
     Dosage: UNK
  4. MACROBID [Concomitant]
     Active Substance: NITROFURANTOIN\NITROFURANTOIN MONOHYDRATE
     Indication: URINARY TRACT INFECTION
     Dosage: UNK
     Dates: start: 20200415, end: 20200417
  5. GOCOVRI [Concomitant]
     Active Substance: AMANTADINE
     Indication: DYSKINESIA
     Dosage: 137 MG, QD
     Route: 048
     Dates: start: 20200313, end: 20200319
  6. LOSARTAN. [Concomitant]
     Active Substance: LOSARTAN
     Dosage: UNK
  7. CALCIUM WITH VITAMIN D [CALCIUM CARBONATE;COLECALCIFEROL] [Concomitant]
     Dosage: UNK
  8. GOCOVRI [Concomitant]
     Active Substance: AMANTADINE
     Indication: DYSKINESIA
     Dosage: 274 MG, QD AT BEDTIME
     Route: 048
     Dates: start: 20200320, end: 20200419
  9. ASPIRIN (CARDIO) [Concomitant]
     Active Substance: ASPIRIN
  10. TYLENOL [Concomitant]
     Active Substance: ACETAMINOPHEN
     Dosage: UNK
  11. CARBIDOPA/LEVODOPA [Concomitant]
     Active Substance: CARBIDOPA\LEVODOPA
  12. LOXAPINE. [Concomitant]
     Active Substance: LOXAPINE
     Dosage: UNK
  13. MIRALAX [Concomitant]
     Active Substance: POLYETHYLENE GLYCOL 3350
     Dosage: UNK
  14. SENNOSIDE A+B [Concomitant]
     Active Substance: SENNOSIDES A AND B
     Dosage: UNK

REACTIONS (2)
  - Confusional state [Recovered/Resolved]
  - Blepharospasm [Recovered/Resolved]

NARRATIVE: CASE EVENT DATE: 20200419
